FAERS Safety Report 22590166 (Version 10)
Quarter: 2025Q1

REPORT INFORMATION
  Report Type: Spontaneous
  Country: US (occurrence: US)
  Receive Date: 20230612
  Receipt Date: 20250117
  Transmission Date: 20250408
  Serious: Yes (Other)
  Sender: PERRIGO
  Company Number: US-PERRIGO-23US006673

PATIENT
  Age: 46 Year
  Sex: Male
  Weight: 79.819 kg

DRUGS (1)
  1. TRIPLE ANTIBIOTIC PLUS [Suspect]
     Active Substance: BACITRACIN ZINC\NEOMYCIN\POLYMYXIN B SULFATE\PRAMOXINE HYDROCHLORIDE
     Indication: Bone pain
     Route: 061
     Dates: start: 20230518, end: 20230518

REACTIONS (19)
  - Sepsis [Unknown]
  - Application site pain [Recovering/Resolving]
  - Application site swelling [Recovered/Resolved]
  - Application site ulcer [Recovered/Resolved]
  - Application site discharge [Recovered/Resolved]
  - Application site burn [Recovered/Resolved]
  - Application site infection [Unknown]
  - Application site exfoliation [Recovered/Resolved]
  - Application site scar [Unknown]
  - Condition aggravated [Recovering/Resolving]
  - Pain in extremity [Recovered/Resolved]
  - Application site discomfort [Recovering/Resolving]
  - Stress [Not Recovered/Not Resolved]
  - Application site rash [Recovered/Resolved]
  - Pain in extremity [Recovering/Resolving]
  - Onychomycosis [Not Recovered/Not Resolved]
  - Neuropathy peripheral [Not Recovered/Not Resolved]
  - Dizziness [Not Recovered/Not Resolved]
  - Off label use [Recovered/Resolved]

NARRATIVE: CASE EVENT DATE: 20230501
